FAERS Safety Report 7551066-1 (Version None)
Quarter: 2011Q2

REPORT INFORMATION
  Report Type: 
  Country: None (occurrence: None)
  Receive Date: 20110616
  Receipt Date: 20110607
  Transmission Date: 20111010
  Serious: Yes (Hospitalization)
  Sender: FDA-Public Use
  Company Number: US-BRISTOL-MYERS SQUIBB COMPANY-15830219

PATIENT
  Age: 54 Year
  Sex: Male
  Weight: 43 kg

DRUGS (11)
  1. CARBOPLATIN [Suspect]
     Indication: NON-SMALL CELL LUNG CANCER
     Route: 042
     Dates: start: 20110209, end: 20110504
  2. GEMCITABINE [Suspect]
     Indication: NON-SMALL CELL LUNG CANCER
     Route: 042
     Dates: start: 20110209, end: 20110511
  3. COMPAZINE [Concomitant]
     Indication: VOMITING
     Route: 048
  4. CETUXIMAB [Suspect]
     Indication: NON-SMALL CELL LUNG CANCER
     Route: 042
     Dates: start: 20110209, end: 20110518
  5. DOCUSATE SODIUM [Concomitant]
     Indication: CONSTIPATION
     Dosage: 100MG 4*/DAY PRN
     Route: 048
  6. COMPAZINE [Concomitant]
     Indication: NAUSEA
     Route: 048
  7. ATIVAN [Concomitant]
     Indication: NAUSEA
     Route: 048
  8. ATIVAN [Concomitant]
     Indication: VOMITING
     Route: 048
  9. MIRALAX [Concomitant]
     Indication: CONSTIPATION
     Route: 048
     Dates: start: 20110316
  10. MAG-OX [Concomitant]
     Indication: MEDICAL DIET
     Route: 048
     Dates: start: 20110302
  11. VICODIN [Concomitant]
     Indication: PAIN
     Dosage: 1 DF = 5/325MG
     Route: 048

REACTIONS (2)
  - HYPONATRAEMIA [None]
  - SYNCOPE [None]
